FAERS Safety Report 9562560 (Version 1)
Quarter: 2013Q3

REPORT INFORMATION
  Report Type: Spontaneous
  Country: US (occurrence: US)
  Receive Date: 20130927
  Receipt Date: 20130927
  Transmission Date: 20140515
  Serious: Yes (Hospitalization)
  Sender: FDA-Public Use
  Company Number: US-PFIZER INC-2013277672

PATIENT
  Age: 68 Year
  Sex: Male
  Weight: 79.37 kg

DRUGS (1)
  1. LIPITOR [Suspect]
     Indication: CARDIAC DISORDER
     Dosage: 20 MG, DAILY

REACTIONS (3)
  - Fall [Unknown]
  - Rib fracture [Recovering/Resolving]
  - Spinal fracture [Recovering/Resolving]
